FAERS Safety Report 15581280 (Version 1)
Quarter: 2018Q4

REPORT INFORMATION
  Report Type: Spontaneous
  Country: LV (occurrence: LV)
  Receive Date: 20181105
  Receipt Date: 20181105
  Transmission Date: 20190205
  Serious: Yes (Death, Other)
  Sender: FDA-Public Use
  Company Number: LV-009507513-1810LVA014104

PATIENT
  Age: 49 Year

DRUGS (3)
  1. IPILIMUMAB [Concomitant]
     Active Substance: IPILIMUMAB
     Dosage: 3 MG/KG EVERY 3 WEEKS 4 CYCLES. RECEIVED 3 CYCLES
  2. KEYTRUDA [Suspect]
     Active Substance: PEMBROLIZUMAB
     Indication: MALIGNANT MELANOMA
     Dosage: 2MG/KG INFUSION EVERY 3 WEEKS
     Dates: start: 201705, end: 201802
  3. NIVOLUMAB [Concomitant]
     Active Substance: NIVOLUMAB
     Dosage: 1MG/KG EVERY 3 WEEKS

REACTIONS (3)
  - Malignant neoplasm progression [Fatal]
  - Ascites [Unknown]
  - Ileus [Unknown]

NARRATIVE: CASE EVENT DATE: 201802
